FAERS Safety Report 9826892 (Version 1)
Quarter: 2013Q4

REPORT INFORMATION
  Report Type: Spontaneous
  Country: GB (occurrence: None)
  Receive Date: 20131112
  Receipt Date: 20131112
  Transmission Date: 20140711
  Serious: Yes (Other)
  Sender: FDA-Public Use
  Company Number: E2B_00000952

PATIENT
  Age: 51 Year
  Sex: Female
  Weight: 73 kg

DRUGS (12)
  1. LISINOPRIL [Suspect]
     Indication: PRODUCT USED FOR UNKNOWN INDICATION
     Dosage: UNKNOWN (UNKNOWN, UNKNOWN), UNKNOWN
     Dates: start: 20130424
  2. AMITRIPTYLINE HYDROCHLORIDE (UNKNOWN) [Concomitant]
  3. TRIMETHOPRIM (UNKNOWN) [Concomitant]
  4. DESOGESTREL (CERELLE) (UNKNOWN) [Concomitant]
  5. CODEINE PHOSPHATE+PARACETAMOL (CO-CODAMOL) (UNKNOWN) [Concomitant]
  6. PROCHLORPERZAINE (UNKNOWN) [Concomitant]
  7. RAMIPRIL (UNKNOWN) (RAMIPRIL) [Concomitant]
  8. SALBUTAMOL (UNKNOWN) [Concomitant]
  9. ACETYLSALICYLIC ACID (ASPIRIN) (UNKNOWN) [Concomitant]
  10. ATORVASTATIN (UNKNOWN) [Concomitant]
  11. BISOPROLOL (UNKNOWN) [Concomitant]
  12. VENLAFAXINE (UNKNOWN) (VENLAFAXINE HYDROCHLORIDE) [Concomitant]

REACTIONS (1)
  - Cough [None]
